FAERS Safety Report 14065514 (Version 1)
Quarter: 2017Q4

REPORT INFORMATION
  Report Type: Spontaneous
  Country: DE (occurrence: DE)
  Receive Date: 20171009
  Receipt Date: 20171009
  Transmission Date: 20180321
  Serious: Yes (Congenital Anomaly, Other)
  Sender: FDA-Public Use
  Company Number: DE-JNJFOC-20171001653

PATIENT
  Age: 0 Year
  Sex: Male
  Weight: 2.06 kg

DRUGS (2)
  1. REMICADE [Suspect]
     Active Substance: INFLIXIMAB
     Indication: CROHN^S DISEASE
     Route: 064
     Dates: start: 20160329, end: 20161101
  2. AZATHIOPRINE. [Suspect]
     Active Substance: AZATHIOPRINE
     Indication: CROHN^S DISEASE
     Route: 064
     Dates: start: 20160329, end: 20170101

REACTIONS (5)
  - Foetal exposure during pregnancy [Recovered/Resolved]
  - Atrial septal defect [Not Recovered/Not Resolved]
  - Cardiac aneurysm [Not Recovered/Not Resolved]
  - Hepatic cyst [Not Recovered/Not Resolved]
  - Premature baby [Recovering/Resolving]

NARRATIVE: CASE EVENT DATE: 2016
